FAERS Safety Report 10648897 (Version 2)
Quarter: 2014Q4

REPORT INFORMATION
  Report Type: Spontaneous
  Country: US (occurrence: US)
  Receive Date: 20141212
  Receipt Date: 20141216
  Transmission Date: 20150529
  Serious: Yes (Other)
  Sender: FDA-Public Use
  Company Number: US-PFIZER INC-2014340406

PATIENT
  Age: 33 Year
  Sex: Female
  Weight: 68 kg

DRUGS (2)
  1. EFFEXOR [Suspect]
     Active Substance: VENLAFAXINE HYDROCHLORIDE
     Indication: DEPRESSION
     Dosage: 37.5 MG, UNK
     Dates: start: 20141020, end: 20141128
  2. EFFEXOR [Suspect]
     Active Substance: VENLAFAXINE HYDROCHLORIDE
     Dosage: 75 MG, UNK
     Dates: start: 2014

REACTIONS (15)
  - Vomiting [Not Recovered/Not Resolved]
  - Condition aggravated [Unknown]
  - Face injury [Unknown]
  - Depression [Unknown]
  - Pain [Not Recovered/Not Resolved]
  - Pain of skin [Not Recovered/Not Resolved]
  - Retching [Unknown]
  - Loss of consciousness [Unknown]
  - Tunnel vision [Not Recovered/Not Resolved]
  - Fall [Unknown]
  - Abnormal dreams [Unknown]
  - Morbid thoughts [Unknown]
  - Decreased appetite [Unknown]
  - Weight decreased [Unknown]
  - Influenza like illness [Unknown]

NARRATIVE: CASE EVENT DATE: 2014
